FAERS Safety Report 5746852-4 (Version None)
Quarter: 2008Q2

REPORT INFORMATION
  Report Type: 
  Country: None (occurrence: None)
  Receive Date: 20080522
  Receipt Date: 20080512
  Transmission Date: 20081010
  Serious: Yes (Hospitalization, Other)
  Sender: FDA-Public Use
  Company Number: US-PFIZER INC-2006094166

PATIENT
  Sex: Male
  Weight: 175 kg

DRUGS (2)
  1. BEXTRA [Suspect]
     Indication: MUSCULOSKELETAL PAIN
  2. BEXTRA [Suspect]
     Indication: ARTHRALGIA

REACTIONS (1)
  - CEREBROVASCULAR ACCIDENT [None]
